FAERS Safety Report 5997427-3 (Version None)
Quarter: 2008Q4

REPORT INFORMATION
  Report Type: 
  Country: None (occurrence: None)
  Receive Date: 20081212
  Receipt Date: 20081111
  Transmission Date: 20090506
  Serious: No
  Sender: FDA-Public Use
  Company Number: US-ABBOTT-08P-163-0487374-00

PATIENT
  Sex: Female
  Weight: 102.6 kg

DRUGS (6)
  1. HUMIRA [Suspect]
     Indication: CROHN'S DISEASE
     Dosage: EVERY OTHER WEEK
     Dates: start: 20080501
  2. HUMIRA [Suspect]
     Indication: RHEUMATOID ARTHRITIS
  3. UNKNOWN CROHNS MEDICATION [Concomitant]
     Indication: CROHN'S DISEASE
     Dosage: 6 CAPSULES PER DAY
  4. PANTOPRAZOLE SODIUM [Concomitant]
     Indication: GASTROOESOPHAGEAL REFLUX DISEASE
  5. BUPROPION HYDROCHLORIDE [Concomitant]
     Indication: EX-TOBACCO USER
  6. LOTREL [Concomitant]
     Indication: HYPERTENSION
     Dosage: 5/20MG DAILY

REACTIONS (1)
  - HERPES ZOSTER [None]
